FAERS Safety Report 16165937 (Version 1)
Quarter: 2019Q2

REPORT INFORMATION
  Report Type: Report from Study
  Country: GB (occurrence: GB)
  Receive Date: 20190406
  Receipt Date: 20190406
  Transmission Date: 20190711
  Serious: Yes (Other)
  Sender: FDA-Public Use
  Company Number: GB-ACCORD-117437

PATIENT
  Sex: Female

DRUGS (7)
  1. METHOTREXATE. [Suspect]
     Active Substance: METHOTREXATE
     Indication: STILL^S DISEASE
  2. RITUXIMAB. [Suspect]
     Active Substance: RITUXIMAB
     Indication: STILL^S DISEASE
  3. ADALIMUMAB [Suspect]
     Active Substance: ADALIMUMAB
     Indication: STILL^S DISEASE
  4. CANAKINUMAB. [Suspect]
     Active Substance: CANAKINUMAB
     Indication: STILL^S DISEASE
  5. FLUDARABINE/FLUDARABINE PHOSPHATE [Suspect]
     Active Substance: FLUDARABINE PHOSPHATE
     Indication: ALLOGENIC STEM CELL TRANSPLANTATION
     Dosage: FROM DAYS 8 TO 4
  6. TOCILIZUMAB. [Suspect]
     Active Substance: TOCILIZUMAB
     Indication: STILL^S DISEASE
  7. ABATACEPT [Suspect]
     Active Substance: ABATACEPT
     Indication: STILL^S DISEASE

REACTIONS (6)
  - Osteoporosis [Unknown]
  - Polycystic ovaries [Unknown]
  - Glucose tolerance impaired [Unknown]
  - Off label use [Unknown]
  - Obesity [Unknown]
  - Non-alcoholic steatohepatitis [Unknown]
